FAERS Safety Report 5629033-4 (Version None)
Quarter: 2008Q1

REPORT INFORMATION
  Report Type: 
  Country: None (occurrence: None)
  Receive Date: 20080216
  Receipt Date: 20080110
  Transmission Date: 20080703
  Serious: No
  Sender: FDA-Public Use
  Company Number: US-BAXTER-2008BH000127

PATIENT
  Age: 72 Year
  Sex: Female
  Weight: 50 kg

DRUGS (15)
  1. HEPARIN SODIUM [Suspect]
     Indication: ANTICOAGULANT THERAPY
     Route: 010
  2. CLONIDINE [Concomitant]
     Indication: BLOOD PRESSURE
     Route: 048
  3. VITAMIN CAP [Concomitant]
     Indication: DRUG USE FOR UNKNOWN INDICATION
     Dosage: DOSE UNIT:UNKNOWN
     Route: 048
  4. ATENOLOL [Concomitant]
     Indication: BLOOD PRESSURE
     Route: 048
  5. FOLIC ACID [Concomitant]
     Indication: DRUG USE FOR UNKNOWN INDICATION
     Route: 048
  6. FERROUS SULFATE TAB [Concomitant]
     Indication: BLOOD IRON
     Route: 048
  7. ZOCOR [Concomitant]
     Indication: BLOOD CHOLESTEROL
     Route: 048
  8. GLUCOTROL XL [Concomitant]
     Indication: DIABETES MELLITUS
     Route: 048
  9. ACCUPRIL [Concomitant]
     Indication: DRUG USE FOR UNKNOWN INDICATION
     Route: 048
  10. MINOXIDIL [Concomitant]
     Indication: BLOOD PRESSURE INCREASED
     Route: 048
  11. EPOGEN [Concomitant]
     Indication: ANAEMIA
     Dosage: DOSE UNIT:UNKNOWN
     Route: 042
  12. CA-CARBONATE + GLYCINE [Concomitant]
     Indication: MINERAL SUPPLEMENTATION
     Route: 042
  13. ZEMPLAR [Concomitant]
     Indication: ANAEMIA
     Route: 042
  14. VENOFER [Concomitant]
     Indication: ANAEMIA
     Route: 042
  15. CALCIUM CARBONATE [Concomitant]
     Route: 048

REACTIONS (8)
  - BLOOD CULTURE POSITIVE [None]
  - DYSPNOEA [None]
  - FEELING HOT [None]
  - FLUSHING [None]
  - HYPERHIDROSIS [None]
  - HYPOTENSION [None]
  - NAUSEA [None]
  - THIRST [None]
